FAERS Safety Report 8096728-5 (Version None)
Quarter: 2012Q1

REPORT INFORMATION
  Report Type: 
  Country: None (occurrence: None)
  Receive Date: 20120129
  Receipt Date: 20111116
  Transmission Date: 20120608
  Serious: No
  Sender: FDA-Public Use
  Company Number: US-ABBOTT-11P-163-0874802-00

PATIENT
  Age: 57 Year
  Sex: Female

DRUGS (4)
  1. HUMIRA [Suspect]
     Indication: RHEUMATOID ARTHRITIS
     Dates: start: 20111104
  2. FOLIC ACID [Concomitant]
     Indication: PRODUCT USED FOR UNKNOWN INDICATION
  3. PAXIL [Concomitant]
     Indication: PRODUCT USED FOR UNKNOWN INDICATION
  4. DICLOFENAC [Concomitant]
     Indication: INFLAMMATION

REACTIONS (4)
  - PRURITUS [None]
  - RASH MACULAR [None]
  - RASH PRURITIC [None]
  - RASH PAPULAR [None]
